FAERS Safety Report 14477086 (Version 1)
Quarter: 2018Q1

REPORT INFORMATION
  Report Type: Report from Study
  Country: US (occurrence: US)
  Receive Date: 20180201
  Receipt Date: 20180201
  Transmission Date: 20180509
  Serious: No
  Sender: FDA-Public Use
  Company Number: US-EXELIXIS-CABO-17008177

PATIENT
  Sex: Male

DRUGS (10)
  1. CABOMETYX [Suspect]
     Active Substance: CABOZANTINIB S-MALATE
     Indication: RENAL CANCER
     Dosage: 60 MG, QD
     Route: 048
     Dates: start: 2016
  2. LEVOTHYROXINE. [Concomitant]
     Active Substance: LEVOTHYROXINE
  3. ROBITUSSIN (GUAIFENESIN) [Concomitant]
     Active Substance: GUAIFENESIN
  4. AMLODIPINE [Concomitant]
     Active Substance: AMLODIPINE BESYLATE
  5. FENOFIBRATE. [Concomitant]
     Active Substance: FENOFIBRATE
  6. MYRBETRIQ [Concomitant]
     Active Substance: MIRABEGRON
  7. ULORIC [Concomitant]
     Active Substance: FEBUXOSTAT
  8. ASPIRIN. [Concomitant]
     Active Substance: ASPIRIN
  9. ZOCOR [Concomitant]
     Active Substance: SIMVASTATIN
  10. COREG [Concomitant]
     Active Substance: CARVEDILOL

REACTIONS (2)
  - Rash vesicular [Unknown]
  - Diarrhoea [Unknown]
